FAERS Safety Report 7476819-X (Version None)
Quarter: 2011Q2

REPORT INFORMATION
  Report Type: 
  Country: None (occurrence: None)
  Receive Date: 20110512
  Receipt Date: 20110504
  Transmission Date: 20111010
  Serious: Yes (Hospitalization, Disabling)
  Sender: FDA-Public Use
  Company Number: FR-PFIZER INC-2011095494

PATIENT
  Age: 34 Year
  Sex: Female

DRUGS (1)
  1. SIROLIMUS [Suspect]
     Indication: IMMUNOSUPPRESSION
     Dosage: UNK
     Dates: start: 20070625

REACTIONS (4)
  - DIABETIC FOOT [None]
  - LOCALISED INFECTION [None]
  - STREPTOCOCCAL INFECTION [None]
  - ANAEMIA [None]
